FAERS Safety Report 12883945 (Version 9)
Quarter: 2020Q2

REPORT INFORMATION
  Report Type: Spontaneous
  Country: US (occurrence: US)
  Receive Date: 20161026
  Receipt Date: 20200609
  Transmission Date: 20200713
  Serious: No
  Sender: FDA-Public Use
  Company Number: US-PFIZER INC-2014018528

PATIENT
  Age: 59 Year
  Sex: Female
  Weight: 48.07 kg

DRUGS (22)
  1. TRAZODONE HYDROCHLORIDE. [Concomitant]
     Active Substance: TRAZODONE HYDROCHLORIDE
     Indication: DEPRESSION
     Dosage: 400 MG, 1X/DAY (100 MG TABS (TRAZODONE HCL), 4 PO QHS)
     Route: 048
     Dates: start: 20130401
  2. LYRICA [Suspect]
     Active Substance: PREGABALIN
     Indication: ALCOHOL ABUSE
     Dosage: 50 MG, 2X/DAY
     Route: 048
  3. EXCEDRIN [Concomitant]
     Active Substance: ACETAMINOPHEN\ASPIRIN\CAFFEINE
     Indication: HEADACHE
     Dosage: 2 DF, AS NEEDED
     Dates: start: 20120731
  4. CLONAZEPAM. [Concomitant]
     Active Substance: CLONAZEPAM
     Indication: RESTLESS LEGS SYNDROME
     Dosage: 2 MG, 1X/DAY (TAKE TWO TABS BY MOUTH ONCE DAILY. 56 PILLS MUST LAST 28D)
     Route: 048
     Dates: start: 20140902
  5. CLONAZEPAM. [Concomitant]
     Active Substance: CLONAZEPAM
     Dosage: 2 MG, 1X/DAY (1 BID)
     Route: 048
  6. LYRICA [Suspect]
     Active Substance: PREGABALIN
     Indication: PAIN
     Dosage: 125 MG, 2X/DAY (50MG CAPS, ALONG WITH 75 MG CAPSULE)
     Route: 048
  7. TRAZODONE HYDROCHLORIDE. [Concomitant]
     Active Substance: TRAZODONE HYDROCHLORIDE
     Dosage: 400 MG, DAILY
  8. ROPINIROLE HCL [Concomitant]
     Active Substance: ROPINIROLE HYDROCHLORIDE
     Dosage: 2 MG, AS NEEDED
     Dates: start: 20140902
  9. LYRICA [Suspect]
     Active Substance: PREGABALIN
     Indication: FIBROMYALGIA
     Dosage: 75 MG, 2X/DAY
     Route: 048
     Dates: start: 20140108
  10. ROPINIROLE HCL [Concomitant]
     Active Substance: ROPINIROLE HYDROCHLORIDE
     Dosage: 1 MG, 1X/DAY
  11. LYRICA [Suspect]
     Active Substance: PREGABALIN
     Indication: MAJOR DEPRESSION
  12. INDOMETHACIN. [Concomitant]
     Active Substance: INDOMETHACIN
     Dosage: UNK
  13. SENNA S [Concomitant]
     Active Substance: DOCUSATE SODIUM\SENNA LEAF
     Dosage: 100 MG, 1X/DAY [SENNOSIDES 8.6 MG/DOCUSATE SODIUM 50 MG][TAKE 2 50 MG TABLETS PO QD]
     Route: 048
     Dates: start: 20130903
  14. SINEMET [Concomitant]
     Active Substance: CARBIDOPA\LEVODOPA
     Dosage: UNK
  15. TRAMADOL HCL [Concomitant]
     Active Substance: TRAMADOL HYDROCHLORIDE
     Dosage: 50 MG, 3X/DAY (1 PILL BY MOUTH THREE TIMES A DAY)
     Route: 048
     Dates: start: 20140902
  16. SENNA [Concomitant]
     Active Substance: SENNA LEAF\SENNOSIDES\SENNOSIDES A AND B
     Dosage: 300 MG, 1X/DAY
     Route: 048
     Dates: start: 20130903
  17. SENNA [Concomitant]
     Active Substance: SENNA LEAF\SENNOSIDES\SENNOSIDES A AND B
     Dosage: 100 MG, 1X/DAY
     Route: 048
  18. LYRICA [Suspect]
     Active Substance: PREGABALIN
     Indication: TOBACCO ABUSE
     Dosage: 125 MG, UNK
  19. VITAMIN D3 [Concomitant]
     Active Substance: CHOLECALCIFEROL
     Dosage: 2000 IU, DAILY
     Route: 048
     Dates: start: 20130315
  20. LINZESS [Concomitant]
     Active Substance: LINACLOTIDE
     Dosage: 145 UG, 1X/DAY
     Dates: start: 20140527
  21. LYRICA [Suspect]
     Active Substance: PREGABALIN
     Indication: DEPRESSION
     Dosage: 125 MG, 2X/DAY
     Dates: start: 201609
  22. LINZESS [Concomitant]
     Active Substance: LINACLOTIDE
     Dosage: 290 UG, 1X/DAY (TAKE TWO IN THE MORNING)

REACTIONS (4)
  - Drug ineffective [Unknown]
  - Fall [Unknown]
  - Musculoskeletal pain [Unknown]
  - Memory impairment [Unknown]

NARRATIVE: CASE EVENT DATE: 20161111
